FAERS Safety Report 5231264-2 (Version None)
Quarter: 2007Q1

REPORT INFORMATION
  Report Type: 
  Country: None (occurrence: None)
  Receive Date: 20070205
  Receipt Date: 20070205
  Transmission Date: 20070707
  Serious: Yes (Life-Threatening, Hospitalization)
  Sender: FDA-Public Use
  Company Number: None

PATIENT
  Sex: Male
  Weight: 68.0396 kg

DRUGS (3)
  1. REMICADE [Suspect]
     Indication: CROHN'S DISEASE
     Dosage: 682 MG EVERY 6 WEEKS IV
     Route: 042
     Dates: end: 20061122
  2. IMURAN [Suspect]
     Indication: INFLUENZA IMMUNISATION
     Dosage: 50MG, 4 TIMES DAILY ORAL
     Route: 048
  3. FLU VACCINE [Concomitant]

REACTIONS (5)
  - ACUTE RESPIRATORY DISTRESS SYNDROME [None]
  - DIALYSIS [None]
  - HISTOPLASMOSIS DISSEMINATED [None]
  - INFLUENZA LIKE ILLNESS [None]
  - RENAL FAILURE [None]
